FAERS Safety Report 18073174 (Version 1)
Quarter: 2020Q3

REPORT INFORMATION
  Report Type: Spontaneous
  Country: US (occurrence: US)
  Receive Date: 20200727
  Receipt Date: 20200727
  Transmission Date: 20201103
  Serious: Yes (Disabling)
  Sender: FDA-Public Use
  Company Number: None

PATIENT
  Age: 33 Year
  Sex: Female
  Weight: 107.1 kg

DRUGS (8)
  1. HYDROXYCHLOROQUINE [Concomitant]
     Active Substance: HYDROXYCHLOROQUINE
  2. MELOXICAM. [Concomitant]
     Active Substance: MELOXICAM
  3. RESTASIS [Suspect]
     Active Substance: CYCLOSPORINE
     Indication: DRY EYE
     Dosage: ?          QUANTITY:60 VIALS;?
     Route: 047
     Dates: start: 20200406, end: 20200725
  4. METHOTREXATE. [Concomitant]
     Active Substance: METHOTREXATE
  5. PROAIR HFA [Concomitant]
     Active Substance: ALBUTEROL SULFATE
  6. WELLBUTRIN [Concomitant]
     Active Substance: BUPROPION HYDROCHLORIDE
  7. XIIDRA [Concomitant]
     Active Substance: LIFITEGRAST
  8. FOLIC ACID. [Concomitant]
     Active Substance: FOLIC ACID

REACTIONS (4)
  - Corneal disorder [None]
  - Ulcerative keratitis [None]
  - Eye pain [None]
  - Superficial injury of eye [None]

NARRATIVE: CASE EVENT DATE: 20200725
